FAERS Safety Report 16212458 (Version 2)
Quarter: 2019Q2

REPORT INFORMATION
  Report Type: Spontaneous
  Country: US (occurrence: US)
  Receive Date: 20190418
  Receipt Date: 20190424
  Transmission Date: 20190711
  Serious: No
  Sender: FDA-Public Use
  Company Number: US-PFIZER INC-2019168478

PATIENT
  Age: 58 Year
  Sex: Female
  Weight: 81.18 kg

DRUGS (2)
  1. GABAPENTIN. [Suspect]
     Active Substance: GABAPENTIN
     Indication: NEURALGIA
     Dosage: UNK UNK, DAILY (2400-2600MG A DAY)
  2. GABAPENTIN. [Suspect]
     Active Substance: GABAPENTIN
     Indication: HERPES ZOSTER

REACTIONS (2)
  - Drug ineffective [Unknown]
  - Rash [Unknown]
